FAERS Safety Report 16462380 (Version 3)
Quarter: 2019Q3

REPORT INFORMATION
  Report Type: Spontaneous
  Country: US (occurrence: US)
  Receive Date: 20190621
  Receipt Date: 20190809
  Transmission Date: 20191004
  Serious: No
  Sender: FDA-Public Use
  Company Number: US-PFIZER INC-2019261585

PATIENT
  Sex: Female
  Weight: 68 kg

DRUGS (2)
  1. CELEBREX [Suspect]
     Active Substance: CELECOXIB
     Dosage: 200 MG, 2X/DAY
     Dates: start: 20190612, end: 20190616
  2. CELEBREX [Suspect]
     Active Substance: CELECOXIB
     Indication: ARTHRITIS
     Dosage: 200 MG, 2X/DAY
     Dates: start: 2006, end: 20090508

REACTIONS (5)
  - Eating disorder [Unknown]
  - Vomiting [Unknown]
  - Muscle spasms [Not Recovered/Not Resolved]
  - Hand deformity [Unknown]
  - Diarrhoea [Unknown]
